FAERS Safety Report 24755633 (Version 2)
Quarter: 2025Q1

REPORT INFORMATION
  Report Type: Spontaneous
  Country: US (occurrence: US)
  Receive Date: 20241219
  Receipt Date: 20250325
  Transmission Date: 20250409
  Serious: No
  Sender: SANOFI AVENTIS
  Company Number: US-SA-2024SA372438

PATIENT
  Age: 48 Year
  Sex: Female

DRUGS (1)
  1. DUPIXENT [Suspect]
     Active Substance: DUPILUMAB
     Indication: Diffuse cutaneous mastocytosis
     Dosage: 200 MG, QOW
     Route: 058

REACTIONS (6)
  - Off label use [Unknown]
  - Hypersensitivity [Unknown]
  - Injection site rash [Recovered/Resolved]
  - Injection site swelling [Unknown]
  - Condition aggravated [Unknown]
  - Product use in unapproved indication [Unknown]
